FAERS Safety Report 15354770 (Version 2)
Quarter: 2018Q4

REPORT INFORMATION
  Report Type: Spontaneous
  Country: US (occurrence: US)
  Receive Date: 20180906
  Receipt Date: 20181231
  Transmission Date: 20190204
  Serious: Yes (Other)
  Sender: FDA-Public Use
  Company Number: US-AUROBINDO-AUR-APL-2018-044384

PATIENT
  Sex: Female

DRUGS (1)
  1. DEXAMFETAMINE+AMFETAMINE [Suspect]
     Active Substance: AMPHETAMINE\DEXTROAMPHETAMINE
     Indication: PRODUCT USED FOR UNKNOWN INDICATION
     Dosage: UNK
     Route: 065

REACTIONS (9)
  - Confusional state [Unknown]
  - Palpitations [Recovered/Resolved]
  - Apparent death [Unknown]
  - Cerebrovascular accident [Unknown]
  - Nausea [Unknown]
  - Impaired driving ability [Unknown]
  - Headache [Unknown]
  - Swollen tongue [Unknown]
  - Hypoaesthesia [Recovered/Resolved]
